FAERS Safety Report 4692880-X (Version None)
Quarter: 2005Q2

REPORT INFORMATION
  Report Type: 
  Country: None (occurrence: None)
  Receive Date: 20050615
  Receipt Date: 20050606
  Transmission Date: 20051028
  Serious: Yes (Hospitalization, Other)
  Sender: FDA-Public Use
  Company Number: 2005050698

PATIENT
  Age: 65 Year
  Sex: Male

DRUGS (7)
  1. LIPITOR [Suspect]
     Indication: DYSLIPIDAEMIA
     Dosage: 80 MG (40 MG, 2 IN1 D), ORAL
     Route: 048
     Dates: start: 20041001
  2. CAPOTEN [Concomitant]
  3. SUSTRATE (PROPATHYLNITRATE) [Concomitant]
  4. SOMALGIN (ACETYLSALICYLIC ACID, ALUMINIUM GLYCINATE, MAGENSIUM CARBONA [Concomitant]
  5. CLOPIDOGREL BISULFATE [Concomitant]
  6. DOXAZOSIN (DOXAZOSIN) [Concomitant]
  7. ALDACTONE [Concomitant]

REACTIONS (4)
  - DISEASE RECURRENCE [None]
  - MYOCARDIAL INFARCTION [None]
  - PROSTATE CANCER [None]
  - STRESS [None]
